FAERS Safety Report 6924029 (Version 11)
Quarter: 2014Q1

REPORT INFORMATION
  Report Type: Report from Study
  Country: CA (occurrence: CA)
  Receive Date: 20090227
  Receipt Date: 20140113
  Transmission Date: 20141002
  Serious: Yes (Other)
  Sender: FDA-Public Use
  Company Number: PHHY2009CA06213

PATIENT
  Age: 63 Year
  Sex: Female

DRUGS (3)
  1. SANDOSTATIN LAR [Suspect]
     Indication: ACROMEGALY
     Dosage: 30 MG, EVERY 4 WEEKS
     Route: 030
     Dates: start: 20050526
  2. SANDOSTATIN LAR [Suspect]
     Dosage: 30 MG, QMO
     Route: 030
  3. ZOLOFT (SERTRALINE HYDROCHLORIDE) [Concomitant]
     Dosage: 50 MG, QD

REACTIONS (18)
  - Loss of consciousness [Unknown]
  - Cerebral palsy [Unknown]
  - Dysstasia [Unknown]
  - Balance disorder [Unknown]
  - Fall [Unknown]
  - Epistaxis [Unknown]
  - Contusion [Unknown]
  - Insomnia [Unknown]
  - Panic attack [Unknown]
  - Myalgia [Unknown]
  - Mobility decreased [Unknown]
  - Vomiting [Unknown]
  - Diarrhoea [Unknown]
  - Dyspnoea [Unknown]
  - Malaise [Unknown]
  - Blood pressure increased [Unknown]
  - Feelings of worthlessness [Unknown]
  - Crying [Unknown]
